FAERS Safety Report 5682981-1 (Version None)
Quarter: 2008Q1

REPORT INFORMATION
  Report Type: 
  Country: None (occurrence: None)
  Receive Date: 20080327
  Receipt Date: 20080325
  Transmission Date: 20080703
  Serious: Yes (Disabling, Other)
  Sender: FDA-Public Use
  Company Number: US-ALLERGAN-0803580US

PATIENT

DRUGS (1)
  1. BOTOX [Suspect]
     Indication: MUSCLE SPASTICITY
     Dosage: UNK, SINGLE
     Route: 030

REACTIONS (1)
  - DYSPHAGIA [None]
